FAERS Safety Report 10629194 (Version 1)
Quarter: 2014Q4

REPORT INFORMATION
  Report Type: Spontaneous
  Country: US (occurrence: US)
  Receive Date: 20141205
  Receipt Date: 20141205
  Transmission Date: 20150529
  Serious: No
  Sender: FDA-Public Use
  Company Number: US-BRISTOL-MYERS SQUIBB COMPANY-21370986

PATIENT
  Age: 64 Year
  Sex: Female

DRUGS (4)
  1. PIOGLITAZONE HCL [Concomitant]
     Active Substance: PIOGLITAZONE
  2. GLIMEPIRIDE. [Concomitant]
     Active Substance: GLIMEPIRIDE
  3. BYETTA [Suspect]
     Active Substance: EXENATIDE
     Indication: TYPE 2 DIABETES MELLITUS
     Dosage: STARTED AT 5MCG
  4. METFORMIN HCL [Suspect]
     Active Substance: METFORMIN HYDROCHLORIDE

REACTIONS (4)
  - Medication error [Unknown]
  - Hunger [Unknown]
  - Adverse event [Unknown]
  - Blood glucose decreased [Unknown]
